FAERS Safety Report 8854502 (Version 3)
Quarter: 2014Q2

REPORT INFORMATION
  Report Type: Spontaneous
  Country: GR (occurrence: GR)
  Receive Date: 20121023
  Receipt Date: 20131018
  Transmission Date: 20141212
  Serious: Yes (Other)
  Sender: FDA-Public Use
  Company Number: GR-PFIZER INC-2012259035

PATIENT
  Age: 45 Year
  Sex: Female

DRUGS (2)
  1. SOLU-CORTEF [Suspect]
     Indication: PERIPHERAL SWELLING
     Dosage: 500 MG, SINGLE
     Route: 030
     Dates: start: 20120916, end: 20120916
  2. SOLU-CORTEF [Suspect]
     Indication: ARTHROPOD STING

REACTIONS (5)
  - Injection site infection [Recovering/Resolving]
  - Injection site pustule [Not Recovered/Not Resolved]
  - Injection site inflammation [Recovering/Resolving]
  - Injection site pain [Recovered/Resolved]
  - Injection site bruising [Recovered/Resolved]
